FAERS Safety Report 8548717-1 (Version None)
Quarter: 2012Q3

REPORT INFORMATION
  Report Type: 
  Country: None (occurrence: None)
  Receive Date: 20120730
  Receipt Date: 20120723
  Transmission Date: 20120928
  Serious: Yes (Hospitalization, Other)
  Sender: FDA-Public Use
  Company Number: PHHY2012FR064347

PATIENT
  Age: 84 Year
  Sex: Female
  Weight: 63 kg

DRUGS (6)
  1. ZOPLICONE [Concomitant]
     Dates: start: 20000101
  2. ZOLEDRONOC ACID [Suspect]
     Indication: OSTEOPOROSIS
     Route: 042
     Dates: start: 20120501
  3. CYMBALTA [Concomitant]
     Dates: start: 20080101
  4. DELURSAN [Concomitant]
     Dates: start: 20080101
  5. MIOREL [Concomitant]
     Dates: start: 20120101
  6. LOPRESSIL [Concomitant]
     Dates: start: 20080101

REACTIONS (2)
  - SPINAL FRACTURE [None]
  - GASTROINTESTINAL PAIN [None]
